FAERS Safety Report 14281196 (Version 9)
Quarter: 2018Q2

REPORT INFORMATION
  Report Type: Spontaneous
  Country: PL (occurrence: PL)
  Receive Date: 20171213
  Receipt Date: 20180511
  Transmission Date: 20180711
  Serious: Yes (Hospitalization)
  Sender: FDA-Public Use
  Company Number: PL-AUROBINDO-AUR-APL-2017-45162

PATIENT
  Age: 37 Year
  Sex: Female

DRUGS (86)
  1. METOPROLOL. [Suspect]
     Active Substance: METOPROLOL
     Dosage: DOSAGE FORM: UNSPECIFIED ()
     Route: 065
  2. HEPARIN [Suspect]
     Active Substance: HEPARIN SODIUM
     Indication: PRODUCT USED FOR UNKNOWN INDICATION
     Dosage: UNK ()
     Route: 065
  3. DIAZEPAM. [Suspect]
     Active Substance: DIAZEPAM
     Indication: PRODUCT USED FOR UNKNOWN INDICATION
     Dosage: UNK ()
     Route: 065
  4. DIAZEPAM. [Suspect]
     Active Substance: DIAZEPAM
     Dosage: DOSAGE FORM: UNSPECIFIED ()
     Route: 065
  5. CIPROFLOXACIN. [Suspect]
     Active Substance: CIPROFLOXACIN
     Dosage: DOSAGE FORM: UNSPECIFIED ()
     Route: 042
  6. ENOXAPARIN [Suspect]
     Active Substance: ENOXAPARIN
     Indication: PRODUCT USED FOR UNKNOWN INDICATION
     Route: 065
  7. FLUCONAZOLE. [Suspect]
     Active Substance: FLUCONAZOLE
     Indication: CANDIDA INFECTION
     Dosage: UNK
     Route: 042
  8. FLUCONAZOLE. [Suspect]
     Active Substance: FLUCONAZOLE
     Dosage: DOSAGE FORM: SOLUTION ()
     Route: 042
  9. FLUCONAZOLE. [Suspect]
     Active Substance: FLUCONAZOLE
     Dosage: DOSAGE FORM: SOLUTION ()
     Route: 042
  10. HEPARIN [Suspect]
     Active Substance: HEPARIN SODIUM
     Dosage: DOSAGE FORM: UNSPECIFIED ()
     Route: 065
  11. HEPARIN [Suspect]
     Active Substance: HEPARIN SODIUM
     Dosage: DOSAGE FORM: UNSPECIFIED ()
     Route: 065
  12. NITRENDIPINE [Suspect]
     Active Substance: NITRENDIPINE
     Indication: PRODUCT USED FOR UNKNOWN INDICATION
     Dosage: UNK ()
     Route: 065
  13. OXYGEN. [Suspect]
     Active Substance: OXYGEN
     Dosage: DOSAGE FORM: UNSPECIFIED ()
     Route: 065
  14. OXYGEN. [Suspect]
     Active Substance: OXYGEN
     Dosage: DOSAGE FORM: UNSPECIFIED ()
     Route: 065
  15. DIAZEPAM. [Suspect]
     Active Substance: DIAZEPAM
     Dosage: DOSAGE FORM: UNSPECIFIED ()
     Route: 065
  16. CIPROFLOXACIN. [Suspect]
     Active Substance: CIPROFLOXACIN
     Dosage: DOSAGE FORM: UNSPECIFIED ()
     Route: 042
  17. CIPROFLOXACIN. [Suspect]
     Active Substance: CIPROFLOXACIN
     Dosage: DOSAGE FORM: UNSPECIFIED ()
     Route: 042
  18. OSELTAMIVIR [Suspect]
     Active Substance: OSELTAMIVIR
     Dosage: DOSAGE FORM: UNSPECIFIED ()
     Route: 065
  19. METHYLDOPA. [Suspect]
     Active Substance: METHYLDOPA
     Dosage: DOSAGE FORM: UNSPECIFIED ()
     Route: 065
  20. CEFUROXIME. [Suspect]
     Active Substance: CEFUROXIME
     Dosage: DOSAGE FORM: UNSPECIFIED ()
     Route: 065
  21. FLUCONAZOLE. [Suspect]
     Active Substance: FLUCONAZOLE
     Dosage: DOSAGE FORM: UNSPECIFIED ()
     Route: 042
  22. FLUCONAZOLE. [Suspect]
     Active Substance: FLUCONAZOLE
     Dosage: DOSAGE FORM: SOLUTION ()
     Route: 042
  23. PIPERACILLIN AND TAZOBACTAM [Suspect]
     Active Substance: PIPERACILLIN SODIUM\TAZOBACTAM SODIUM
     Indication: PRODUCT USED FOR UNKNOWN INDICATION
     Route: 042
  24. NITRENDIPINE [Suspect]
     Active Substance: NITRENDIPINE
     Dosage: DOSAGE FORM: UNSPECIFIED ()
     Route: 065
  25. OXYGEN. [Suspect]
     Active Substance: OXYGEN
     Dosage: DOSAGE FORM: UNSPECIFIED ()
     Route: 065
  26. OXYGEN. [Suspect]
     Active Substance: OXYGEN
     Dosage: DOSAGE FORM: UNSPECIFIED ()
     Route: 065
  27. DIAZEPAM. [Suspect]
     Active Substance: DIAZEPAM
     Dosage: DOSAGE FORM: UNSPECIFIED ()
     Route: 065
  28. OSELTAMIVIR [Suspect]
     Active Substance: OSELTAMIVIR
     Dosage: DOSAGE FORM: UNSPECIFIED ()
     Route: 065
  29. METHYLDOPA. [Suspect]
     Active Substance: METHYLDOPA
     Dosage: DOSAGE FORM: UNSPECIFIED ()
     Route: 065
  30. CEFUROXIME. [Suspect]
     Active Substance: CEFUROXIME
     Indication: UPPER RESPIRATORY TRACT INFECTION
     Dosage: UNK
     Route: 065
  31. CEFUROXIME. [Suspect]
     Active Substance: CEFUROXIME
     Dosage: DOSAGE FORM: UNSPECIFIED ()
     Route: 065
  32. FLUCONAZOLE. [Suspect]
     Active Substance: FLUCONAZOLE
     Dosage: DOSAGE FORM: SOLUTION ()
     Route: 042
  33. FLUCONAZOLE. [Suspect]
     Active Substance: FLUCONAZOLE
     Dosage: DOSAGE FORM: SOLUTION ()
     Route: 042
  34. NITRENDIPINE [Suspect]
     Active Substance: NITRENDIPINE
     Dosage: DOSAGE FORM: UNSPECIFIED ()
     Route: 065
  35. OXYGEN. [Suspect]
     Active Substance: OXYGEN
     Indication: PRODUCT USED FOR UNKNOWN INDICATION
     Route: 065
  36. OXYGEN. [Suspect]
     Active Substance: OXYGEN
     Dosage: DOSAGE FORM: UNSPECIFIED ()
     Route: 065
  37. OXYGEN. [Suspect]
     Active Substance: OXYGEN
     Dosage: DOSAGE FORM: UNSPECIFIED ()
     Route: 065
  38. OXYGEN. [Suspect]
     Active Substance: OXYGEN
     Dosage: DOSAGE FORM: UNSPECIFIED ()
     Route: 065
  39. CIPROFLOXACIN. [Suspect]
     Active Substance: CIPROFLOXACIN
     Indication: PRODUCT USED FOR UNKNOWN INDICATION
     Dosage: UNK
     Route: 065
  40. CIPROFLOXACIN. [Suspect]
     Active Substance: CIPROFLOXACIN
     Dosage: DOSAGE FORM: UNSPECIFIED ()
     Route: 042
  41. BUDESONIDE. [Suspect]
     Active Substance: BUDESONIDE
     Dosage: INHALED ()
     Route: 065
  42. OSELTAMIVIR [Suspect]
     Active Substance: OSELTAMIVIR
     Dosage: DOSAGE FORM: UNSPECIFIED ()
     Route: 065
  43. METOPROLOL. [Suspect]
     Active Substance: METOPROLOL
     Indication: PRODUCT USED FOR UNKNOWN INDICATION
     Dosage: DOSAGE FORM: UNSPECIFIED
     Route: 065
  44. FLUCONAZOLE. [Suspect]
     Active Substance: FLUCONAZOLE
     Dosage: DOSAGE FORM: SOLUTION ()
     Route: 042
  45. FLUCONAZOLE. [Suspect]
     Active Substance: FLUCONAZOLE
     Dosage: DOSAGE FORM: SOLUTION ()
     Route: 042
  46. HEPARIN [Suspect]
     Active Substance: HEPARIN SODIUM
     Dosage: DOSAGE FORM: UNSPECIFIED ()
     Route: 065
  47. NITRENDIPINE [Suspect]
     Active Substance: NITRENDIPINE
     Dosage: DOSAGE FORM: UNSPECIFIED ()
     Route: 065
  48. OXYGEN. [Suspect]
     Active Substance: OXYGEN
     Dosage: DOSAGE FORM: UNSPECIFIED ()
     Route: 065
  49. OXYGEN. [Suspect]
     Active Substance: OXYGEN
     Dosage: DOSAGE FORM: UNSPECIFIED ()
     Route: 065
  50. CIPROFLOXACIN. [Suspect]
     Active Substance: CIPROFLOXACIN
     Dosage: DOSAGE FORM: UNSPECIFIED ()
     Route: 042
  51. METHYLDOPA. [Suspect]
     Active Substance: METHYLDOPA
     Dosage: DOSAGE FORM: UNSPECIFIED ()
     Route: 065
  52. FLUCONAZOLE. [Suspect]
     Active Substance: FLUCONAZOLE
     Dosage: DOSAGE FORM: UNSPECIFIED ()
     Route: 042
  53. FLUCONAZOLE. [Suspect]
     Active Substance: FLUCONAZOLE
     Dosage: DOSAGE FORM: SOLUTION ()
     Route: 042
  54. HEPARIN [Suspect]
     Active Substance: HEPARIN SODIUM
     Dosage: DOSAGE FORM: UNSPECIFIED ()
     Route: 065
  55. NITRENDIPINE [Suspect]
     Active Substance: NITRENDIPINE
     Dosage: DOSAGE FORM: UNSPECIFIED ()
     Route: 065
  56. DIAZEPAM. [Suspect]
     Active Substance: DIAZEPAM
     Dosage: DOSAGE FORM: UNSPECIFIED ()
     Route: 065
  57. DIAZEPAM. [Suspect]
     Active Substance: DIAZEPAM
     Dosage: DOSAGE FORM: UNSPECIFIED ()
     Route: 065
  58. CIPROFLOXACIN. [Suspect]
     Active Substance: CIPROFLOXACIN
     Dosage: DOSAGE FORM: UNSPECIFIED ()
     Route: 042
  59. ENOXAPARIN [Suspect]
     Active Substance: ENOXAPARIN
     Dosage: DOSAGE FORM: UNSPECIFIED ()
     Route: 065
  60. BUDESONIDE. [Suspect]
     Active Substance: BUDESONIDE
     Indication: PRODUCT USED FOR UNKNOWN INDICATION
     Dosage: UNK
     Route: 065
  61. BUDESONIDE. [Suspect]
     Active Substance: BUDESONIDE
     Dosage: DOSAGE FORM: UNSPECIFIED ()
     Route: 065
  62. OSELTAMIVIR [Suspect]
     Active Substance: OSELTAMIVIR
     Indication: PRODUCT USED FOR UNKNOWN INDICATION
     Dosage: UNK
     Route: 065
  63. BETAMETHASONE SODIUM PHOSPHATE [Suspect]
     Active Substance: BETAMETHASONE SODIUM PHOSPHATE
     Dosage: DOSAGE FORM: UNSPECIFIED ()
     Route: 065
  64. BETAMETHASONE SODIUM PHOSPHATE [Suspect]
     Active Substance: BETAMETHASONE SODIUM PHOSPHATE
     Dosage: DOSAGE FORM: UNSPECIFIED ()
     Route: 065
  65. FLUCONAZOLE. [Suspect]
     Active Substance: FLUCONAZOLE
     Dosage: DOSAGE FORM: SOLUTION ()
     Route: 042
  66. FLUCONAZOLE. [Suspect]
     Active Substance: FLUCONAZOLE
     Dosage: DOSAGE FORM: SOLUTION ()
     Route: 042
  67. FLUCONAZOLE. [Suspect]
     Active Substance: FLUCONAZOLE
     Dosage: SOLUTION ()
     Route: 042
  68. DIAZEPAM. [Suspect]
     Active Substance: DIAZEPAM
     Dosage: DOSAGE FORM: UNSPECIFIED ()
     Route: 065
  69. CIPROFLOXACIN. [Suspect]
     Active Substance: CIPROFLOXACIN
     Dosage: DOSAGE FORM: UNSPECIFIED ()
     Route: 042
  70. ENOXAPARIN [Suspect]
     Active Substance: ENOXAPARIN
     Dosage: DOSAGE FORM: UNSPECIFIED ()
     Route: 065
  71. BUDESONIDE. [Suspect]
     Active Substance: BUDESONIDE
     Dosage: DOSAGE FORM: UNSPECIFIED ()
     Route: 065
  72. OSELTAMIVIR [Suspect]
     Active Substance: OSELTAMIVIR
     Dosage: DOSAGE FORM: UNSPECIFIED ()
     Route: 065
  73. METHYLDOPA. [Suspect]
     Active Substance: METHYLDOPA
     Dosage: DOSAGE FORM: UNSPECIFIED ()
     Route: 065
  74. FLUCONAZOLE. [Suspect]
     Active Substance: FLUCONAZOLE
     Dosage: DOSAGE FORM: SOLUTION ()
     Route: 042
  75. NITRENDIPINE [Suspect]
     Active Substance: NITRENDIPINE
     Indication: PRODUCT USED FOR UNKNOWN INDICATION
     Dosage: DOSAGE FORM: UNSPECIFIED ()
     Route: 065
  76. NITRENDIPINE [Suspect]
     Active Substance: NITRENDIPINE
     Dosage: DOSAGE FORM: UNSPECIFIED ()
     Route: 065
  77. MAGNESIUM SULPHATE                 /07507001/ [Suspect]
     Active Substance: MAGNESIUM SULFATE
     Indication: PRODUCT USED FOR UNKNOWN INDICATION
     Route: 065
  78. CIPROFLOXACIN. [Suspect]
     Active Substance: CIPROFLOXACIN
     Dosage: DOSAGE FORM: UNSPECIFIED ()
     Route: 065
  79. CIPROFLOXACIN. [Suspect]
     Active Substance: CIPROFLOXACIN
     Dosage: DOSAGE FORM: UNSPECIFIED ()
     Route: 042
  80. CIPROFLOXACIN. [Suspect]
     Active Substance: CIPROFLOXACIN
     Dosage: DOSAGE FORM: UNSPECIFIED ()
     Route: 042
  81. ENOXAPARIN [Suspect]
     Active Substance: ENOXAPARIN
     Dosage: DOSAGE FORM: UNSPECIFIED ()
     Route: 065
  82. ENOXAPARIN [Suspect]
     Active Substance: ENOXAPARIN
     Dosage: DOSAGE FORM: UNSPECIFIED ()
     Route: 065
  83. BUDESONIDE. [Suspect]
     Active Substance: BUDESONIDE
     Dosage: DOSAGE FORM: UNSPECIFIED ()
     Route: 065
  84. METHYLDOPA. [Suspect]
     Active Substance: METHYLDOPA
     Indication: PRODUCT USED FOR UNKNOWN INDICATION
     Dosage: UNK
     Route: 065
  85. METHYLDOPA. [Suspect]
     Active Substance: METHYLDOPA
     Indication: PRODUCT USED FOR UNKNOWN INDICATION
     Dosage: DOSAGE FORM: UNSPECIFIED ()
     Route: 065
  86. BETAMETHASONE SODIUM PHOSPHATE [Suspect]
     Active Substance: BETAMETHASONE SODIUM PHOSPHATE
     Indication: MATERNAL THERAPY TO ENHANCE FOETAL LUNG MATURITY
     Dosage: DOSAGE FORM: UNSPECIFIED ()
     Route: 065

REACTIONS (12)
  - Abdominal pain lower [Unknown]
  - Exposure during pregnancy [Unknown]
  - Oliguria [Unknown]
  - Hypertension [Unknown]
  - Hypoaesthesia [Recovered/Resolved]
  - Dyspnoea [Recovered/Resolved]
  - Chest pain [Recovered/Resolved]
  - Tachypnoea [Recovered/Resolved]
  - Blood creatine increased [Unknown]
  - Drug ineffective [Unknown]
  - Vaginal haemorrhage [Unknown]
  - Off label use [Unknown]
